FAERS Safety Report 21180408 (Version 1)
Quarter: 2022Q3

REPORT INFORMATION
  Report Type: Spontaneous
  Country: NZ (occurrence: AU)
  Receive Date: 20220806
  Receipt Date: 20220806
  Transmission Date: 20221027
  Serious: Yes (Hospitalization)
  Sender: FDA-Public Use
  Company Number: NZ-JNJFOC-20220800868

PATIENT
  Sex: Female

DRUGS (3)
  1. REMICADE [Suspect]
     Active Substance: INFLIXIMAB
     Indication: Inflammatory bowel disease
     Route: 041
  2. PANADOL [Concomitant]
     Active Substance: ACETAMINOPHEN
  3. CODEINE [Concomitant]
     Active Substance: CODEINE

REACTIONS (2)
  - Suicide attempt [Unknown]
  - Off label use [Unknown]
